FAERS Safety Report 25417377 (Version 1)
Quarter: 2025Q2

REPORT INFORMATION
  Report Type: Spontaneous
  Country: CN (occurrence: CN)
  Receive Date: 20250610
  Receipt Date: 20250610
  Transmission Date: 20250716
  Serious: Yes (Other)
  Sender: PFIZER
  Company Number: CN-PFIZER INC-PV202500067897

PATIENT
  Age: 26 Year
  Sex: Female

DRUGS (2)
  1. HEMABATE [Suspect]
     Active Substance: CARBOPROST TROMETHAMINE
     Indication: Uterine atony
     Dosage: 250 UG, 1X/DAY
     Route: 019
     Dates: start: 20250530, end: 20250530
  2. HEMABATE [Suspect]
     Active Substance: CARBOPROST TROMETHAMINE
     Indication: Haemostasis

REACTIONS (5)
  - Headache [Recovered/Resolved]
  - Chest discomfort [Recovered/Resolved]
  - Rash erythematous [Recovered/Resolved]
  - Blood pressure increased [Recovered/Resolved]
  - Off label use [Unknown]

NARRATIVE: CASE EVENT DATE: 20250530
